FAERS Safety Report 16466566 (Version 1)
Quarter: 2019Q2

REPORT INFORMATION
  Report Type: Spontaneous
  Country: IT (occurrence: IT)
  Receive Date: 20190623
  Receipt Date: 20190623
  Transmission Date: 20190711
  Serious: Yes (Other)
  Sender: FDA-Public Use
  Company Number: PHHY2019IT139110

PATIENT
  Age: 54 Year

DRUGS (1)
  1. COSENTYX [Suspect]
     Active Substance: SECUKINUMAB
     Indication: PSORIATIC ARTHROPATHY
     Dosage: 300 MG, CYCLIC
     Route: 058
     Dates: start: 20170101, end: 20190415

REACTIONS (2)
  - Fungal infection [Recovering/Resolving]
  - Nail bed infection [Recovering/Resolving]

NARRATIVE: CASE EVENT DATE: 20190415
